FAERS Safety Report 15698877 (Version 4)
Quarter: 2019Q3

REPORT INFORMATION
  Report Type: Spontaneous
  Country: US (occurrence: US)
  Receive Date: 20181207
  Receipt Date: 20190904
  Transmission Date: 20191004
  Serious: Yes (Hospitalization, Other)
  Sender: FDA-Public Use
  Company Number: US-PFIZER INC-2018500457

PATIENT
  Age: 13 Year
  Sex: Female
  Weight: 49.89 kg

DRUGS (2)
  1. GENOTROPIN [Suspect]
     Active Substance: SOMATROPIN
     Indication: BODY HEIGHT BELOW NORMAL
     Dosage: 1.5 MG, 1X/DAY [ONCE A NIGHT]
  2. GENOTROPIN [Suspect]
     Active Substance: SOMATROPIN
     Indication: GROWTH DISORDER
     Dosage: 1.5 MG, EVERY DAY ONCE IN THE EVENING (ONCE A NIGHT)
     Dates: start: 20180218

REACTIONS (7)
  - Device issue [Unknown]
  - Device issue [Recovered/Resolved]
  - Injection site discomfort [Unknown]
  - Drug dose omission by device [Recovered/Resolved]
  - Blood calcium decreased [Unknown]
  - Injection site haemorrhage [Unknown]
  - Injection site pain [Unknown]

NARRATIVE: CASE EVENT DATE: 20170601
